FAERS Safety Report 12448262 (Version 1)
Quarter: 2016Q2

REPORT INFORMATION
  Report Type: Spontaneous
  Country: US (occurrence: US)
  Receive Date: 20160608
  Receipt Date: 20160608
  Transmission Date: 20160815
  Serious: Yes (Other)
  Sender: FDA-Public Use
  Company Number: US-ABBVIE-16P-163-1646396-00

PATIENT
  Sex: Female

DRUGS (2)
  1. PROGESTERONE. [Concomitant]
     Active Substance: PROGESTERONE
     Indication: PRODUCT USED FOR UNKNOWN INDICATION
     Route: 065
  2. LUPRON DEPOT [Suspect]
     Active Substance: LEUPROLIDE ACETATE
     Indication: PRODUCT USED FOR UNKNOWN INDICATION
     Route: 050
     Dates: start: 201403

REACTIONS (4)
  - Osteoporosis [Unknown]
  - Tibia fracture [Unknown]
  - Fibula fracture [Unknown]
  - Fall [Unknown]

NARRATIVE: CASE EVENT DATE: 201405
